FAERS Safety Report 19122590 (Version 2)
Quarter: 2021Q3

REPORT INFORMATION
  Report Type: Report from Study
  Country: None (occurrence: CA)
  Receive Date: 20210412
  Receipt Date: 20210703
  Transmission Date: 20211014
  Serious: Yes (Other)
  Sender: FDA-Public Use
  Company Number: CA-ABBVIE-21K-028-3848264-00

PATIENT
  Age: 15 Year
  Sex: Female

DRUGS (2)
  1. HUMIRA [Suspect]
     Active Substance: ADALIMUMAB
     Indication: JUVENILE IDIOPATHIC ARTHRITIS
     Route: 058
     Dates: start: 20130715, end: 202012
  2. HUMIRA [Suspect]
     Active Substance: ADALIMUMAB
     Route: 058
     Dates: start: 202012

REACTIONS (3)
  - Juvenile idiopathic arthritis [Unknown]
  - Pain in extremity [Unknown]
  - Minimal residual disease [Unknown]

NARRATIVE: CASE EVENT DATE: 202011
